FAERS Safety Report 8008884-5 (Version None)
Quarter: 2011Q4

REPORT INFORMATION
  Report Type: 
  Country: None (occurrence: None)
  Receive Date: 20111227
  Receipt Date: 20111221
  Transmission Date: 20120403
  Serious: Yes (Life-Threatening)
  Sender: FDA-Public Use
  Company Number: FR-ASTRAZENECA-2011SE77700

PATIENT
  Age: 24 Year
  Sex: Female

DRUGS (4)
  1. XYLOCAINE [Suspect]
     Route: 042
     Dates: start: 20101202, end: 20101202
  2. DIPRIVAN [Suspect]
     Route: 042
     Dates: start: 20101202, end: 20101202
  3. SUFENTANIL CITRATE [Suspect]
     Route: 042
     Dates: start: 20101202, end: 20101202
  4. CELOCURINE [Suspect]
     Route: 042
     Dates: start: 20101202, end: 20101202

REACTIONS (1)
  - ANAPHYLACTIC SHOCK [None]
